FAERS Safety Report 8090385-X (Version None)
Quarter: 2012Q1

REPORT INFORMATION
  Report Type: 
  Country: None (occurrence: None)
  Receive Date: 20120129
  Receipt Date: 20111201
  Transmission Date: 20120608
  Serious: No
  Sender: FDA-Public Use
  Company Number: US-ABBOTT-11P-163-0879658-00

PATIENT
  Sex: Female
  Weight: 59.928 kg

DRUGS (4)
  1. HUMIRA [Suspect]
     Indication: UVEITIS
     Dates: start: 20100101
  2. CYCLOSPORINE [Concomitant]
     Indication: UVEITIS
  3. NEXIUM [Concomitant]
     Indication: GASTRITIS
  4. METHOTREXATE [Concomitant]
     Indication: UVEITIS

REACTIONS (2)
  - FATIGUE [None]
  - OFF LABEL USE [None]
